FAERS Safety Report 7090399-2 (Version None)
Quarter: 2010Q4

REPORT INFORMATION
  Report Type: 
  Country: None (occurrence: None)
  Receive Date: 20101109
  Receipt Date: 20101028
  Transmission Date: 20110411
  Serious: Yes (Hospitalization, Other)
  Sender: FDA-Public Use
  Company Number: US-ELI_LILLY_AND_COMPANY-US201011001951

PATIENT
  Sex: Male
  Weight: 130.16 kg

DRUGS (3)
  1. PRASUGREL HYDROCHLORIDE [Suspect]
     Indication: ACUTE CORONARY SYNDROME
     Dosage: 30 MG, ONCE
     Dates: start: 20101022, end: 20101022
  2. PRASUGREL HYDROCHLORIDE [Suspect]
     Dosage: 10 MG, DAILY (1/D)
     Dates: start: 20101023
  3. ASPIRIN [Concomitant]
     Dosage: 325 MG, DAILY (1/D)

REACTIONS (1)
  - MYOCARDIAL INFARCTION [None]
